FAERS Safety Report 24535593 (Version 3)
Quarter: 2024Q4

REPORT INFORMATION
  Report Type: Spontaneous
  Country: US (occurrence: US)
  Receive Date: 20241022
  Receipt Date: 20241212
  Transmission Date: 20250115
  Serious: No
  Sender: PFIZER
  Company Number: US-PFIZER INC-202400275388

PATIENT
  Age: 13 Year
  Sex: Male
  Weight: 29.03 kg

DRUGS (2)
  1. GENOTROPIN [Suspect]
     Active Substance: SOMATROPIN
     Dosage: UNK
  2. LEVOTHYROXINE [Concomitant]
     Active Substance: LEVOTHYROXINE
     Indication: Hypothyroidism
     Dosage: 66 UG

REACTIONS (3)
  - Device use error [Unknown]
  - Device mechanical issue [Unknown]
  - Device material issue [Unknown]
